FAERS Safety Report 7209735-9 (Version None)
Quarter: 2011Q1

REPORT INFORMATION
  Report Type: 
  Country: None (occurrence: None)
  Receive Date: 20110104
  Receipt Date: 20101222
  Transmission Date: 20110831
  Serious: No
  Sender: FDA-Public Use
  Company Number: GB-MYLANLABS-2010S1023496

PATIENT
  Age: 64 Year
  Sex: Female

DRUGS (2)
  1. ETANERCEPT [Concomitant]
     Indication: PSORIATIC ARTHROPATHY
     Route: 030
  2. ALENDRONATE [Suspect]
     Indication: OSTEOPOROSIS
     Route: 048
     Dates: start: 20100629, end: 20100721

REACTIONS (1)
  - DIARRHOEA HAEMORRHAGIC [None]
